FAERS Safety Report 25233411 (Version 4)
Quarter: 2025Q3

REPORT INFORMATION
  Report Type: Report from Study
  Country: US (occurrence: US)
  Receive Date: 20250424
  Receipt Date: 20250908
  Transmission Date: 20251020
  Serious: No
  Sender: SUNOVION
  Company Number: US-SMPA-2025SPA003943AA

PATIENT
  Age: 79 Year
  Sex: Male

DRUGS (2)
  1. ORGOVYX [Suspect]
     Active Substance: RELUGOLIX
     Indication: Prostate cancer
     Dosage: 360 MG, SINGLE
     Route: 048
  2. ORGOVYX [Suspect]
     Active Substance: RELUGOLIX
     Dosage: 120 MG, QD
     Route: 048
     Dates: start: 20250305

REACTIONS (6)
  - Affect lability [Not Recovered/Not Resolved]
  - Muscular weakness [Unknown]
  - Activities of daily living decreased [Unknown]
  - Hot flush [Recovered/Resolved]
  - Fatigue [Recovering/Resolving]
  - Blood glucose increased [Recovered/Resolved]
